FAERS Safety Report 11854715 (Version 1)
Quarter: 2015Q4

REPORT INFORMATION
  Report Type: Spontaneous
  Country: US (occurrence: None)
  Receive Date: 20151215
  Receipt Date: 20151215
  Transmission Date: 20160305
  Serious: Yes (Other)
  Sender: FDA-Public Use
  Company Number: AUR-APU-2015-03746

PATIENT
  Age: 62 Year
  Sex: Male

DRUGS (4)
  1. SERTRALINE [Concomitant]
     Active Substance: SERTRALINE HYDROCHLORIDE
  2. MIRTAZAPINE TABLETS 15 MG (MIRTAZAPINE) FILM-COATED TABLET, 15MG [Suspect]
     Active Substance: MIRTAZAPINE
     Indication: INSOMNIA
     Dosage: HALF OF A PILL BY 10PM, ONCE A DAY, ORAL
     Route: 048
     Dates: end: 20150406
  3. GABAPENTIN. [Concomitant]
     Active Substance: GABAPENTIN
  4. DOXEPIN [Concomitant]
     Active Substance: DOXEPIN

REACTIONS (1)
  - Dyspepsia [None]
